FAERS Safety Report 12995790 (Version 1)
Quarter: 2016Q4

REPORT INFORMATION
  Report Type: Spontaneous
  Country: US (occurrence: US)
  Receive Date: 20161202
  Receipt Date: 20161202
  Transmission Date: 20170207
  Serious: No
  Sender: FDA-Public Use
  Company Number: US-SPECTRUM PHARMACEUTICALS, INC.-16-F-US-00235

PATIENT
  Age: 43 Year
  Sex: Male

DRUGS (3)
  1. FOLIC ACID. [Concomitant]
     Active Substance: FOLIC ACID
     Indication: PRODUCT USED FOR UNKNOWN INDICATION
     Dosage: UNK
  2. FOLOTYN [Suspect]
     Active Substance: PRALATREXATE
     Indication: MYCOSIS FUNGOIDES
     Dosage: 30 MG, QW
     Route: 042
     Dates: start: 20160721, end: 20160804
  3. FOLOTYN [Suspect]
     Active Substance: PRALATREXATE
     Dosage: 40 MG, QW
     Route: 042
     Dates: start: 20160811

REACTIONS (2)
  - Infected dermal cyst [Unknown]
  - Off label use [Unknown]

NARRATIVE: CASE EVENT DATE: 201608
